FAERS Safety Report 6706876-7 (Version None)
Quarter: 2010Q2

REPORT INFORMATION
  Report Type: 
  Country: None (occurrence: None)
  Receive Date: 20100430
  Receipt Date: 20100430
  Transmission Date: 20101027
  Serious: Yes (Hospitalization)
  Sender: FDA-Public Use
  Company Number: None

PATIENT
  Sex: Male
  Weight: 102.0593 kg

DRUGS (3)
  1. CYMBALTA [Suspect]
     Indication: DEPRESSION
     Dosage: 20MG 3X PO
     Route: 048
     Dates: start: 20090101, end: 20100301
  2. CYMBALTA [Suspect]
     Indication: PAIN
     Dosage: 20MG 3X PO
     Route: 048
     Dates: start: 20090101, end: 20100301
  3. CYMBALTA [Suspect]

REACTIONS (23)
  - APPARENT DEATH [None]
  - BACK PAIN [None]
  - DRUG DEPENDENCE [None]
  - DRUG INEFFECTIVE [None]
  - DYSKINESIA [None]
  - EYE IRRITATION [None]
  - FEELING ABNORMAL [None]
  - GAIT DISTURBANCE [None]
  - HEADACHE [None]
  - HYPERTENSION [None]
  - IMPAIRED DRIVING ABILITY [None]
  - INSOMNIA [None]
  - LACRIMATION INCREASED [None]
  - MALAISE [None]
  - MUSCLE SPASMS [None]
  - MUSCLE TIGHTNESS [None]
  - MUSCLE TWITCHING [None]
  - MUSCULAR WEAKNESS [None]
  - NECK PAIN [None]
  - PRODUCT QUALITY ISSUE [None]
  - TREMOR [None]
  - UNEVALUABLE EVENT [None]
  - WITHDRAWAL SYNDROME [None]
